FAERS Safety Report 4896015-X (Version None)
Quarter: 2005Q4

REPORT INFORMATION
  Report Type: 
  Country: None (occurrence: None)
  Receive Date: 20051220
  Receipt Date: 20050217
  Transmission Date: 20060501
  Serious: Yes (Hospitalization)
  Sender: FDA-Public Use
  Company Number: 396138

PATIENT
  Sex: Male

DRUGS (2)
  1. TAMIFLU [Suspect]
     Indication: VIRAL INFECTION
     Dosage: 75 MG 2 PER DAY ORAL
     Route: 048
     Dates: start: 20050216
  2. TAMIFLU [Suspect]
     Indication: VIRAL LOAD
     Dosage: 75 MG 2 PER DAY ORAL
     Route: 048
     Dates: start: 20050216

REACTIONS (1)
  - CONVULSION [None]
